FAERS Safety Report 8295770-9 (Version None)
Quarter: 2012Q2

REPORT INFORMATION
  Report Type: 
  Country: None (occurrence: None)
  Receive Date: 20120418
  Receipt Date: 20120412
  Transmission Date: 20120825
  Serious: Yes (Death, Hospitalization)
  Sender: FDA-Public Use
  Company Number: DE-GILEAD-2012-0053727

PATIENT
  Age: 89 Year
  Sex: Male

DRUGS (5)
  1. RANOLAZINE [Suspect]
     Indication: ANGINA PECTORIS
     Dosage: 375 MG, BID
     Route: 048
     Dates: start: 20120329, end: 20120401
  2. PANTOPRAZOLE [Concomitant]
  3. NORVASC [Concomitant]
     Indication: CORONARY ARTERY DISEASE
     Dosage: 5 MG, QD
     Route: 048
  4. TIKLYD [Concomitant]
     Indication: ANTIPLATELET THERAPY
     Dosage: 20 MG, QD
     Route: 048
  5. DILTIAZEM HCL [Concomitant]
     Indication: CORONARY ARTERY DISEASE
     Dosage: 180 MG, QD
     Route: 048

REACTIONS (4)
  - RENAL IMPAIRMENT [None]
  - LIVER FUNCTION TEST ABNORMAL [None]
  - URINARY TRACT INFECTION [None]
  - DEHYDRATION [None]
